FAERS Safety Report 11225736 (Version 1)
Quarter: 2015Q2

REPORT INFORMATION
  Report Type: Spontaneous
  Country: FR (occurrence: FR)
  Receive Date: 20150629
  Receipt Date: 20150629
  Transmission Date: 20150821
  Serious: Yes (Life-Threatening)
  Sender: FDA-Public Use
  Company Number: FR-PFIZER INC-2015210548

PATIENT
  Age: 86 Year
  Sex: Female

DRUGS (3)
  1. AMIODARONE HYDROCHLORIDE. [Interacting]
     Active Substance: AMIODARONE HYDROCHLORIDE
  2. PREVISCAN /00789001/ [Suspect]
     Active Substance: FLUINDIONE
  3. TAHOR [Interacting]
     Active Substance: ATORVASTATIN CALCIUM

REACTIONS (2)
  - Haemorrhagic stroke [Not Recovered/Not Resolved]
  - Drug interaction [Not Recovered/Not Resolved]

NARRATIVE: CASE EVENT DATE: 20150602
